FAERS Safety Report 19581941 (Version 1)
Quarter: 2021Q3

REPORT INFORMATION
  Report Type: Spontaneous
  Country: DE (occurrence: DE)
  Receive Date: 20210719
  Receipt Date: 20210719
  Transmission Date: 20211014
  Serious: Yes (Other)
  Sender: FDA-Public Use
  Company Number: DE-GILEAD-2021-0537179

PATIENT
  Sex: Female

DRUGS (3)
  1. HEPCLUDEX [Suspect]
     Active Substance: BULEVIRTIDE
     Indication: HEPATITIS B
     Dosage: 2 MG, QD
     Route: 058
     Dates: start: 20201112, end: 20201229
  2. HEPCLUDEX [Suspect]
     Active Substance: BULEVIRTIDE
     Indication: HEPATITIS D
  3. TENOFOVIR [Concomitant]
     Active Substance: TENOFOVIR
     Route: 048

REACTIONS (6)
  - Injection site erythema [Not Recovered/Not Resolved]
  - Injection site pruritus [Not Recovered/Not Resolved]
  - Injection site swelling [Not Recovered/Not Resolved]
  - Dermatitis allergic [Unknown]
  - Injection site dermatitis [Unknown]
  - Injection site warmth [Not Recovered/Not Resolved]

NARRATIVE: CASE EVENT DATE: 202011
